FAERS Safety Report 5622683-0 (Version None)
Quarter: 2008Q1

REPORT INFORMATION
  Report Type: 
  Country: None (occurrence: None)
  Receive Date: 20080212
  Receipt Date: 20080130
  Transmission Date: 20080703
  Serious: Yes (Hospitalization)
  Sender: FDA-Public Use
  Company Number: HU-BAYER-HU-2005-027881

PATIENT
  Age: 37 Year
  Sex: Female

DRUGS (4)
  1. IUS SHG04209C [Suspect]
     Indication: CONTRACEPTION
     Route: 015
     Dates: start: 20050707, end: 20051220
  2. COVEREX [Concomitant]
     Indication: HYPERTENSION
     Dosage: UNIT DOSE: 4 MG
     Route: 048
     Dates: start: 20050714
  3. CARVEDILOL [Concomitant]
     Indication: HYPERTENSION
     Dosage: UNIT DOSE: 12.5 MG
     Route: 048
     Dates: start: 20050714
  4. NORMODIPIN [Concomitant]
     Indication: HYPERTENSION
     Dosage: UNIT DOSE: 5 MG
     Route: 048
     Dates: start: 20050714

REACTIONS (5)
  - ABDOMINAL PAIN [None]
  - APPENDICITIS [None]
  - OOPHORITIS [None]
  - OVARIAN CYST [None]
  - PYREXIA [None]
